FAERS Safety Report 11560862 (Version 1)
Quarter: 2015Q3

REPORT INFORMATION
  Report Type: Spontaneous
  Country: US (occurrence: US)
  Receive Date: 20150916
  Receipt Date: 20150916
  Transmission Date: 20151125
  Serious: No
  Sender: FDA-Public Use
  Company Number: US-ELI_LILLY_AND_COMPANY-US200810002160

PATIENT
  Age: 49 Year
  Sex: Female

DRUGS (11)
  1. NAPROXYN [Concomitant]
  2. MVI [Concomitant]
     Active Substance: VITAMINS
  3. OMEGA 3 [Concomitant]
     Active Substance: OMEGA-3 FATTY ACIDS
  4. TOPAMAX [Concomitant]
     Active Substance: TOPIRAMATE
  5. VITAMINS [Concomitant]
     Active Substance: VITAMINS
  6. VITAMIN E /001105/ [Concomitant]
  7. IRON [Concomitant]
     Active Substance: IRON
  8. VITAMIN A [Concomitant]
     Active Substance: VITAMIN A
  9. ZINC [Concomitant]
     Active Substance: ZINC\ZINC CHLORIDE
  10. FORTEO [Suspect]
     Active Substance: TERIPARATIDE
     Dosage: 20 UG, DAILY (1/D)
     Dates: start: 200806
  11. SCHIFF MOVE FREE [Concomitant]
     Active Substance: CHONDROITIN SULFATE A\GLUCOSAMINE

REACTIONS (11)
  - Wrist fracture [Not Recovered/Not Resolved]
  - Decreased appetite [Not Recovered/Not Resolved]
  - Headache [Not Recovered/Not Resolved]
  - Nausea [Not Recovered/Not Resolved]
  - Dysgeusia [Not Recovered/Not Resolved]
  - Rhinitis allergic [Not Recovered/Not Resolved]
  - Fall [Recovered/Resolved with Sequelae]
  - Sneezing [Not Recovered/Not Resolved]
  - Back disorder [Not Recovered/Not Resolved]
  - Injection site bruising [Not Recovered/Not Resolved]
  - Memory impairment [Not Recovered/Not Resolved]

NARRATIVE: CASE EVENT DATE: 2008
